FAERS Safety Report 21582606 (Version 1)
Quarter: 2022Q4

REPORT INFORMATION
  Report Type: Spontaneous
  Country: CN (occurrence: CN)
  Receive Date: 20221111
  Receipt Date: 20221111
  Transmission Date: 20230112
  Serious: Yes (Death, Hospitalization)
  Sender: FDA-Public Use
  Company Number: CN-STRIDES ARCOLAB LIMITED-2022SP014815

PATIENT
  Age: 33 Year
  Sex: Male

DRUGS (7)
  1. TACROLIMUS [Suspect]
     Active Substance: TACROLIMUS
     Indication: Renal transplant
     Dosage: UNK
     Route: 065
  2. MYCOPHENOLATE MOFETIL [Suspect]
     Active Substance: MYCOPHENOLATE MOFETIL
     Indication: Renal transplant
     Dosage: UNK
     Route: 065
  3. METHYLPREDNISOLONE [Suspect]
     Active Substance: METHYLPREDNISOLONE
     Indication: Renal transplant
     Dosage: UNK
     Route: 065
  4. FLURBIPROFEN [Concomitant]
     Active Substance: FLURBIPROFEN
     Indication: Analgesic therapy
     Dosage: UNK
     Route: 065
  5. MAGNESIUM ISOGLYCYRRHIZINATE [Concomitant]
     Active Substance: MAGNESIUM ISOGLYCYRRHIZINATE
     Indication: Liver injury
     Dosage: UNK
     Route: 065
  6. SULBACTAM SODIUM [Concomitant]
     Active Substance: SULBACTAM SODIUM
     Indication: Evidence based treatment
     Dosage: UNK
     Route: 042
  7. CEFOPERAZONE SODIUM [Concomitant]
     Active Substance: CEFOPERAZONE SODIUM
     Indication: Evidence based treatment
     Dosage: UNK
     Route: 042

REACTIONS (12)
  - Multiple organ dysfunction syndrome [Fatal]
  - Acute hepatic failure [Unknown]
  - Pneumonitis [Unknown]
  - Acute kidney injury [Unknown]
  - Disseminated intravascular coagulation [Unknown]
  - Herpes zoster disseminated [Fatal]
  - Hepatitis B [Unknown]
  - Septic shock [Unknown]
  - Varicella zoster virus infection [Fatal]
  - Acute respiratory failure [Unknown]
  - Metabolic acidosis [Unknown]
  - Pancreatitis [Unknown]
